FAERS Safety Report 7451493-7 (Version None)
Quarter: 2011Q2

REPORT INFORMATION
  Report Type: 
  Country: None (occurrence: None)
  Receive Date: 20110502
  Receipt Date: 20110426
  Transmission Date: 20111010
  Serious: Yes (Death, Life-Threatening, Hospitalization)
  Sender: FDA-Public Use
  Company Number: US-ASTRAZENECA-2011SE07263

PATIENT
  Sex: Male

DRUGS (3)
  1. CRESTOR [Suspect]
     Route: 048
  2. SLEEPING PILL (NO DRUG SPECIFIED) [Concomitant]
  3. AMBIEN [Suspect]
     Route: 065

REACTIONS (5)
  - DEATH [None]
  - DELUSION [None]
  - UNINTENTIONAL MEDICAL DEVICE REMOVAL BY PATIENT [None]
  - LUNG DISORDER [None]
  - CORONARY ARTERY BYPASS [None]
